FAERS Safety Report 15867801 (Version 1)
Quarter: 2019Q1

REPORT INFORMATION
  Report Type: Spontaneous
  Country: JP (occurrence: JP)
  Receive Date: 20190125
  Receipt Date: 20190125
  Transmission Date: 20190417
  Serious: Yes (Other)
  Sender: FDA-Public Use
  Company Number: JP-009507513-1901JPN009220

PATIENT
  Age: 34 Year
  Sex: Female

DRUGS (3)
  1. MUCODYNE [Suspect]
     Active Substance: CARBOCYSTEINE
     Dosage: UNK
     Route: 048
     Dates: start: 201409, end: 201409
  2. KIPRES [Suspect]
     Active Substance: MONTELUKAST SODIUM
     Dosage: UNK
     Route: 048
     Dates: start: 201409, end: 201409
  3. APLACE [Suspect]
     Active Substance: TROXIPIDE
     Dosage: UNK
     Route: 048
     Dates: start: 201409, end: 201409

REACTIONS (1)
  - Fixed eruption [Unknown]
